FAERS Safety Report 10279442 (Version 1)
Quarter: 2014Q3

REPORT INFORMATION
  Report Type: Spontaneous
  Country: US (occurrence: US)
  Receive Date: 20140707
  Receipt Date: 20140707
  Transmission Date: 20150326
  Serious: Yes (Hospitalization, Other)
  Sender: FDA-Public Use
  Company Number: US-AMGEN INC.-USASP2014050239

PATIENT
  Age: 30 Year
  Sex: Female

DRUGS (5)
  1. DOCETAXEL [Concomitant]
     Active Substance: DOCETAXEL
     Indication: BRCA1 GENE MUTATION
     Dosage: UNK
  2. PEGFILGRASTIM [Suspect]
     Active Substance: PEGFILGRASTIM
     Indication: PRODUCT USED FOR UNKNOWN INDICATION
     Dosage: UNK
     Route: 065
  3. CYCLOPHOSPHAMIDE. [Concomitant]
     Active Substance: CYCLOPHOSPHAMIDE
     Indication: BREAST CANCER
  4. DOCETAXEL [Concomitant]
     Active Substance: DOCETAXEL
     Indication: BREAST CANCER
  5. CYCLOPHOSPHAMIDE. [Concomitant]
     Active Substance: CYCLOPHOSPHAMIDE
     Indication: BRCA1 GENE MUTATION
     Dosage: UNK

REACTIONS (7)
  - Angioedema [Recovered/Resolved]
  - Anaphylactoid reaction [Recovered/Resolved]
  - Heart rate abnormal [Recovered/Resolved]
  - Hypotension [Recovered/Resolved]
  - Urticaria [Recovered/Resolved]
  - Lymphoedema [Recovered/Resolved]
  - Rash pruritic [Recovered/Resolved]
